FAERS Safety Report 10906082 (Version 3)
Quarter: 2016Q1

REPORT INFORMATION
  Report Type: Report from Study
  Country: KR (occurrence: KR)
  Receive Date: 20150311
  Receipt Date: 20160325
  Transmission Date: 20160525
  Serious: Yes (Hospitalization, Other)
  Sender: FDA-Public Use
  Company Number: KR-GILEAD-2015-0140524

PATIENT
  Age: 45 Year
  Sex: Male
  Weight: 86.5 kg

DRUGS (28)
  1. DIABEX [Concomitant]
     Active Substance: METFORMIN HYDROCHLORIDE
     Indication: POLYNEUROPATHY
  2. MVIXS [Concomitant]
     Dosage: 100 MG, UNK
     Route: 065
     Dates: start: 20140911, end: 201505
  3. LYRICA [Concomitant]
     Active Substance: PREGABALIN
     Indication: DIABETES MELLITUS
     Dosage: 75 MG, UNK
     Route: 065
     Dates: start: 20140729
  4. HUMULIN R [Concomitant]
     Active Substance: INSULIN HUMAN
     Dosage: UNK
     Route: 065
     Dates: start: 20140731, end: 20140801
  5. ESPERSON [Concomitant]
     Indication: SEBORRHOEA
  6. FORTERRA [Concomitant]
     Indication: PRODUCT USED FOR UNKNOWN INDICATION
     Dosage: 50 MG, UNK
     Route: 048
     Dates: start: 20141211, end: 201505
  7. RIVOTRIL [Concomitant]
     Active Substance: CLONAZEPAM
     Indication: PRODUCT USED FOR UNKNOWN INDICATION
     Dosage: 0.5 MG, UNK
     Route: 065
     Dates: start: 20140729
  8. URSA [Concomitant]
     Indication: HEPATITIS B
     Dosage: UNK
     Route: 065
     Dates: start: 20140729
  9. HYALEIN [Concomitant]
     Active Substance: HYALURONATE SODIUM
     Indication: PRODUCT USED FOR UNKNOWN INDICATION
     Dosage: 5 UNK, UNK
     Route: 047
     Dates: start: 20150201
  10. LYRICA [Concomitant]
     Active Substance: PREGABALIN
     Indication: POLYNEUROPATHY
  11. GLUCOBAY M [Concomitant]
     Active Substance: ACARBOSE
     Dosage: UNK
     Route: 065
     Dates: start: 20140729
  12. THIOCTIC ACID [Concomitant]
     Active Substance: THIOCTIC ACID
     Indication: DIABETIC NEUROPATHY
     Dosage: UNK
     Route: 042
     Dates: start: 20150130, end: 20150204
  13. LOCERYL [Concomitant]
     Active Substance: AMOROLFINE HYDROCHLORIDE
     Indication: SEBORRHOEA
     Dosage: 5 UNK, UNK
     Route: 065
     Dates: start: 20150131
  14. MVIXS [Concomitant]
     Indication: PRODUCT USED FOR UNKNOWN INDICATION
     Dosage: 50 MG, UNK
     Route: 065
     Dates: start: 20140911
  15. DEXIDE                             /00134201/ [Concomitant]
     Indication: PRODUCT USED FOR UNKNOWN INDICATION
     Dosage: 480 MG, UNK
     Route: 065
     Dates: start: 20150205
  16. TENOFOVIR DISOPROXIL FUMARATE. [Suspect]
     Active Substance: TENOFOVIR DISOPROXIL FUMARATE
     Indication: CHRONIC HEPATITIS B
     Dosage: 300 MG, UNK
     Route: 048
     Dates: start: 20140729
  17. LANTUS [Concomitant]
     Active Substance: INSULIN GLARGINE
     Indication: DIABETES MELLITUS
     Dosage: 40 UNK, UNK
     Route: 058
     Dates: start: 20140729
  18. LIPIDIL SUPRA [Concomitant]
     Indication: HYPERLIPIDAEMIA
     Dosage: UNK
     Route: 065
     Dates: start: 20150128
  19. DIABEX [Concomitant]
     Active Substance: METFORMIN HYDROCHLORIDE
     Indication: DIABETES MELLITUS
     Dosage: UNK
     Route: 065
     Dates: start: 20140729
  20. AZEPTIN                            /00944303/ [Concomitant]
     Indication: PRODUCT USED FOR UNKNOWN INDICATION
     Dosage: 1 MG, UNK
     Route: 065
     Dates: start: 20150131, end: 201504
  21. LANTUS [Concomitant]
     Active Substance: INSULIN GLARGINE
     Indication: POLYNEUROPATHY
  22. ENAFON [Concomitant]
     Indication: DIABETIC NEUROPATHY
     Dosage: 5 MG, UNK
     Route: 065
     Dates: start: 20150203
  23. BASEN                              /01290601/ [Concomitant]
     Active Substance: VOGLIBOSE
     Indication: DIABETES MELLITUS
     Dosage: 0.3 MG, UNK
     Route: 065
     Dates: start: 20150129
  24. BASEN                              /01290601/ [Concomitant]
     Active Substance: VOGLIBOSE
     Indication: POLYNEUROPATHY
  25. LOCERYL [Concomitant]
     Active Substance: AMOROLFINE HYDROCHLORIDE
     Indication: DERMATOPHYTOSIS OF NAIL
  26. ESPERSON [Concomitant]
     Indication: DERMATOPHYTOSIS OF NAIL
     Dosage: 0.25 UNK, UNK
     Route: 065
     Dates: start: 20140801
  27. PENNEL                             /07159001/ [Concomitant]
     Indication: PRODUCT USED FOR UNKNOWN INDICATION
     Dosage: UNK
     Route: 065
     Dates: start: 20140911, end: 201504
  28. NEXIUM [Concomitant]
     Active Substance: ESOMEPRAZOLE MAGNESIUM
     Indication: PRODUCT USED FOR UNKNOWN INDICATION
     Dosage: 20 MG, UNK
     Route: 065
     Dates: start: 20150706

REACTIONS (9)
  - Diabetic neuropathy [Recovered/Resolved]
  - Portal hypertensive gastropathy [Unknown]
  - Asthenia [Recovered/Resolved]
  - Cholelithiasis [Unknown]
  - Renal cyst [Unknown]
  - Hepatic neoplasm [Unknown]
  - Splenomegaly [Unknown]
  - Hepatic cirrhosis [Unknown]
  - Trigger finger [Unknown]

NARRATIVE: CASE EVENT DATE: 20140801
